FAERS Safety Report 4472444-3 (Version None)
Quarter: 2004Q4

REPORT INFORMATION
  Report Type: 
  Country: None (occurrence: None)
  Receive Date: 20041007
  Receipt Date: 20041001
  Transmission Date: 20050328
  Serious: Yes (Other)
  Sender: FDA-Public Use
  Company Number: SUS1-2004-00404

PATIENT
  Age: 8 Year
  Sex: Male

DRUGS (1)
  1. ADDERALL XR 10 [Suspect]
     Dosage: 10 MG
     Dates: end: 20040707

REACTIONS (3)
  - DRUG INEFFECTIVE [None]
  - MEDICATION TAMPERING [None]
  - PHARMACEUTICAL PRODUCT COMPLAINT [None]
